FAERS Safety Report 7796086-7 (Version None)
Quarter: 2011Q4

REPORT INFORMATION
  Report Type: 
  Country: None (occurrence: None)
  Receive Date: 20111004
  Receipt Date: 20110919
  Transmission Date: 20120403
  Serious: Yes (Other)
  Sender: FDA-Public Use
  Company Number: CA-WATSON-2011-15629

PATIENT
  Age: 50 Year
  Sex: Male

DRUGS (2)
  1. GEMCITABINE [Suspect]
     Indication: ADENOCARCINOMA
     Dosage: 40 MG/M2, 2/WEEK
  2. GEMCITABINE [Suspect]
     Dosage: 1000 MG/M2, 1/WEEK

REACTIONS (1)
  - MYOSITIS [None]
